FAERS Safety Report 14944546 (Version 2)
Quarter: 2018Q3

REPORT INFORMATION
  Report Type: Spontaneous
  Country: GB (occurrence: GB)
  Receive Date: 20180529
  Receipt Date: 20180830
  Transmission Date: 20181010
  Serious: Yes (Disabling)
  Sender: FDA-Public Use
  Company Number: GB-009507513-1805GBR012846

PATIENT
  Age: 2 Year
  Sex: Female
  Weight: 16 kg

DRUGS (6)
  1. ALBUTEROL. [Concomitant]
     Active Substance: ALBUTEROL
     Dosage: 2 DF AS NECESSARY
     Route: 055
     Dates: start: 20180426
  2. CLENIL MODULITE [Concomitant]
     Active Substance: BECLOMETHASONE DIPROPIONATE
     Dosage: 4 PUFFS, QD
     Dates: start: 20180426
  3. CETIRIZINE HYDROCHLORIDE. [Concomitant]
     Active Substance: CETIRIZINE HYDROCHLORIDE
     Dosage: 5 ML, QD
     Dates: start: 20180326, end: 20180423
  4. MONTELUKAST SODIUM. [Suspect]
     Active Substance: MONTELUKAST SODIUM
     Indication: COUGH
     Dosage: 4 MG, UNK
     Dates: start: 20180426, end: 20180502
  5. LORATADINE. [Concomitant]
     Active Substance: LORATADINE
     Dosage: 5 ML, QD
     Dates: start: 20180502
  6. CLARITHROMYCIN. [Concomitant]
     Active Substance: CLARITHROMYCIN
     Dosage: 5 ML, Q12H
     Dates: start: 20180307, end: 20180314

REACTIONS (1)
  - Crying [Recovered/Resolved]

NARRATIVE: CASE EVENT DATE: 20180502
